FAERS Safety Report 10139239 (Version 2)
Quarter: 2015Q1

REPORT INFORMATION
  Report Type: Other
  Country: US (occurrence: US)
  Receive Date: 20140429
  Receipt Date: 20150218
  Transmission Date: 20150720
  Serious: Yes (Hospitalization, Other)
  Sender: FDA-Public Use
  Company Number: US-GSKPPD-2014GSK039636

PATIENT
  Age: 52 Year
  Sex: Female

DRUGS (10)
  1. METOPROLOL [Concomitant]
     Active Substance: METOPROLOL
     Dates: start: 20080810
  2. ENALAPRIL [Concomitant]
     Active Substance: ENALAPRIL
     Dates: start: 20080810
  3. ASPIRIN. [Concomitant]
     Active Substance: ASPIRIN
     Dosage: 2 ASA
     Dates: start: 200808, end: 200808
  4. ASPIRIN. [Concomitant]
     Active Substance: ASPIRIN
     Route: 048
     Dates: end: 20080810
  5. NIFEDIPINE. [Concomitant]
     Active Substance: NIFEDIPINE
     Dosage: ON HOLD 10-AUG-2008
  6. AVANDIA [Suspect]
     Active Substance: ROSIGLITAZONE MALEATE
     Indication: DIABETES MELLITUS
     Dosage: DATES OF AVANDIA USE COULD NOT BE CONFIRMED IN RECORDS REVIEWED
     Route: 048
  7. NITROGLYCERIN. [Concomitant]
     Active Substance: NITROGLYCERIN
     Dates: start: 20080809, end: 20080809
  8. HYDROCHLOROTHIAZIDE. [Concomitant]
     Active Substance: HYDROCHLOROTHIAZIDE
     Route: 048
     Dates: start: 20080810
  9. ASPIRIN. [Concomitant]
     Active Substance: ASPIRIN
     Route: 048
     Dates: start: 20080810
  10. ISOSORBIDE [Concomitant]
     Active Substance: ISOSORBIDE
     Dosage: ON HOLD 10-AUG-2008

REACTIONS (2)
  - Myocardial infarction [Unknown]
  - Coronary artery disease [Recovered/Resolved]

NARRATIVE: CASE EVENT DATE: 20080809
